FAERS Safety Report 5400895-9 (Version None)
Quarter: 2007Q3

REPORT INFORMATION
  Report Type: 
  Country: None (occurrence: None)
  Receive Date: 20070725
  Receipt Date: 20070716
  Transmission Date: 20080115
  Serious: Yes (Other)
  Sender: FDA-Public Use
  Company Number: 2007RL000322

PATIENT
  Age: 69 Year
  Sex: Female
  Weight: 55.3388 kg

DRUGS (1)
  1. RYTHMOL [Suspect]
     Indication: ATRIAL FIBRILLATION
     Dosage: PO
     Route: 048
     Dates: start: 20030101, end: 20030101

REACTIONS (2)
  - CARDIAC ABLATION [None]
  - DRUG INEFFECTIVE [None]
